FAERS Safety Report 8033215 (Version 2)
Quarter: 2014Q4

REPORT INFORMATION
  Report Type: Spontaneous
  Country: US (occurrence: US)
  Receive Date: 20110713
  Receipt Date: 20141212
  Transmission Date: 20150529
  Serious: Yes (Death, Hospitalization, Other)
  Sender: FDA-Public Use
  Company Number: US-GLAXOSMITHKLINE-A0789932A

PATIENT
  Age: 65 Year
  Sex: Male

DRUGS (1)
  1. AVANDIA [Suspect]
     Active Substance: ROSIGLITAZONE MALEATE
     Indication: TYPE 2 DIABETES MELLITUS
     Dosage: 4 MG, BID
     Route: 048
     Dates: end: 20040610

REACTIONS (6)
  - Sudden cardiac death [Fatal]
  - Myocardial infarction [Unknown]
  - Coronary artery disease [Unknown]
  - Cardiac failure congestive [Unknown]
  - Ischaemia [Unknown]
  - Cardiac arrest [Unknown]

NARRATIVE: CASE EVENT DATE: 20040610
